FAERS Safety Report 25875264 (Version 1)
Quarter: 2025Q4

REPORT INFORMATION
  Report Type: Spontaneous
  Country: EU (occurrence: EU)
  Receive Date: 20251003
  Receipt Date: 20251003
  Transmission Date: 20260118
  Serious: Yes (Other)
  Sender: TEVA
  Company Number: None

PATIENT
  Age: 55 Year
  Sex: Female

DRUGS (2)
  1. KETOPROFEN [Suspect]
     Active Substance: KETOPROFEN
     Indication: Back pain
     Route: 048
     Dates: start: 2016, end: 2016
  2. MIOREL [Concomitant]
     Indication: Back pain
     Route: 048
     Dates: start: 2016, end: 2016

REACTIONS (1)
  - Type I hypersensitivity [Recovered/Resolved]

NARRATIVE: CASE EVENT DATE: 20160101
